FAERS Safety Report 19510227 (Version 1)
Quarter: 2021Q3

REPORT INFORMATION
  Report Type: Spontaneous
  Country: US (occurrence: US)
  Receive Date: 20210709
  Receipt Date: 20210709
  Transmission Date: 20211014
  Serious: No
  Sender: FDA-Public Use
  Company Number: US-STRIDES ARCOLAB LIMITED-2021SP003616

PATIENT
  Age: 21 Year
  Sex: Female

DRUGS (1)
  1. DEXTROAMPHETAMINE. [Suspect]
     Active Substance: DEXTROAMPHETAMINE
     Indication: SOMNOLENCE
     Dosage: UNK
     Route: 065

REACTIONS (4)
  - Dermatillomania [Unknown]
  - Bruxism [Unknown]
  - Drug intolerance [Unknown]
  - Anxiety [Unknown]
